FAERS Safety Report 7428594-2 (Version None)
Quarter: 2011Q2

REPORT INFORMATION
  Report Type: 
  Country: None (occurrence: None)
  Receive Date: 20110421
  Receipt Date: 20100203
  Transmission Date: 20111010
  Serious: No
  Sender: FDA-Public Use
  Company Number: US-BAYER-201013701NA

PATIENT
  Age: 20 Year
  Sex: Female

DRUGS (1)
  1. YAZ [Suspect]
     Indication: ORAL CONTRACEPTION
     Dosage: 1 DF, QD
     Dates: start: 20090101

REACTIONS (3)
  - VAGINAL HAEMORRHAGE [None]
  - VAGINAL DISCHARGE [None]
  - MENSTRUATION IRREGULAR [None]
